FAERS Safety Report 23560192 (Version 2)
Quarter: 2024Q1

REPORT INFORMATION
  Report Type: Spontaneous
  Country: DE (occurrence: DE)
  Receive Date: 20240223
  Receipt Date: 20240318
  Transmission Date: 20240410
  Serious: Yes (Hospitalization)
  Sender: FDA-Public Use
  Company Number: DE-PFIZER INC-202400047354

PATIENT
  Age: 17 Year
  Sex: Male
  Weight: 66.9 kg

DRUGS (5)
  1. OXBRYTA [Suspect]
     Active Substance: VOXELOTOR
     Indication: Sickle cell disease
     Dosage: 1500 MG, 1X/DAY
     Route: 048
     Dates: start: 202301
  2. HYDROXYUREA [Suspect]
     Active Substance: HYDROXYUREA
     Indication: Sickle cell disease
     Dosage: 1500 MG, 1X/DAY
     Route: 048
     Dates: start: 201903
  3. FLUTICASONE PROPIONATE\SALMETEROL XINAFOATE [Concomitant]
     Active Substance: FLUTICASONE PROPIONATE\SALMETEROL XINAFOATE
     Dosage: 25/125UG  2X/DAY
     Route: 055
     Dates: start: 201903
  4. CHOLECALCIFEROL [Concomitant]
     Active Substance: CHOLECALCIFEROL
     Dosage: 20000 IU, 1X/WEEKLY
     Dates: start: 201903
  5. FOLIC ACID [Concomitant]
     Active Substance: FOLIC ACID
     Dosage: 5 MG, 1X/DAY
     Dates: start: 201903

REACTIONS (7)
  - Bone infarction [Not Recovered/Not Resolved]
  - Pyrexia [Unknown]
  - Back pain [Unknown]
  - Influenza [Unknown]
  - Acute chest syndrome [Unknown]
  - Pneumonia [Recovered/Resolved]
  - Aplasia [Unknown]

NARRATIVE: CASE EVENT DATE: 20240101
